FAERS Safety Report 10775132 (Version 1)
Quarter: 2015Q1

REPORT INFORMATION
  Report Type: Spontaneous
  Country: US (occurrence: None)
  Receive Date: 20150206
  Receipt Date: 20150206
  Transmission Date: 20150721
  Serious: Yes (Hospitalization)
  Sender: FDA-Public Use
  Company Number: HYP201405-000036

PATIENT
  Age: 8 Year
  Sex: Male

DRUGS (3)
  1. RAVICTI [Suspect]
     Active Substance: GLYCEROL PHENYLBUTYRATE
     Indication: UREA CYCLE ENZYME DEFICIENCY
     Dates: start: 201308
  2. PEDIASURE (CARBOHYDRATES NOS, FATS NOS, MINERALS NOS, PROTEIN, VITAMINS NOS) [Concomitant]
  3. MULTIVITAMIN [Concomitant]
     Active Substance: VITAMINS

REACTIONS (7)
  - Vomiting [None]
  - Abdominal pain upper [None]
  - Somnolence [None]
  - Cough [None]
  - Oropharyngeal pain [None]
  - Hyperammonaemic crisis [None]
  - Asthenia [None]

NARRATIVE: CASE EVENT DATE: 20140510
